FAERS Safety Report 6195844-2 (Version None)
Quarter: 2009Q2

REPORT INFORMATION
  Report Type: 
  Country: None (occurrence: None)
  Receive Date: 20090520
  Receipt Date: 20090508
  Transmission Date: 20091009
  Serious: No
  Sender: FDA-Public Use
  Company Number: US-BAYER-200920483NA

PATIENT
  Age: 42 Year
  Sex: Female

DRUGS (2)
  1. MIRENA [Suspect]
     Indication: CONTRACEPTION
     Dosage: CONTINUOUS
     Route: 015
     Dates: start: 20081001, end: 20090101
  2. MIRENA [Suspect]
     Dosage: CONTINUOUS
     Route: 015
     Dates: start: 20090220

REACTIONS (4)
  - AMENORRHOEA [None]
  - INTRA-UTERINE CONTRACEPTIVE DEVICE EXPELLED [None]
  - MENORRHAGIA [None]
  - PREGNANCY WITH CONTRACEPTIVE DEVICE [None]
